FAERS Safety Report 9322740 (Version 5)
Quarter: 2014Q2

REPORT INFORMATION
  Report Type: Spontaneous
  Country: US (occurrence: US)
  Receive Date: 20130601
  Receipt Date: 20140527
  Transmission Date: 20141212
  Serious: Yes (Hospitalization, Disabling)
  Sender: FDA-Public Use
  Company Number: US-ASTRAZENECA-2013SE38682

PATIENT
  Age: 64 Year
  Sex: Female
  Weight: 88.9 kg

DRUGS (15)
  1. NEXIUM [Suspect]
     Indication: DYSPEPSIA
     Route: 048
     Dates: start: 2009
  2. NEXIUM [Suspect]
     Indication: DYSPEPSIA
     Route: 048
     Dates: start: 20100624
  3. ROLAIDS [Concomitant]
     Dosage: TWO AT A TIME
  4. VITAMIN D [Concomitant]
     Indication: BONE DISORDER
  5. VITAMIN D [Concomitant]
     Indication: ARTHROPATHY
  6. MULTI-VITAMINS [Concomitant]
     Indication: EYE DISORDER
  7. MULTI-VITAMINS [Concomitant]
     Indication: CARDIAC DISORDER
  8. CITRACAL [Concomitant]
     Indication: BONE DISORDER
  9. HYDROCO APAP [Concomitant]
     Dosage: TWO AT A TIME
  10. IBUPROFEN [Concomitant]
     Dates: start: 20090515
  11. OXAPROZIN [Concomitant]
     Dates: start: 20090901
  12. BALACET [Concomitant]
     Dates: start: 20090930
  13. LANSOPRAZOLE [Concomitant]
     Dates: start: 20100223
  14. GABAPENTIN [Concomitant]
     Dates: start: 20100727
  15. PREDNISONE [Concomitant]
     Dates: start: 20120810

REACTIONS (11)
  - Fall [Unknown]
  - Gallbladder disorder [Unknown]
  - Ligament disorder [Unknown]
  - Rotator cuff syndrome [Unknown]
  - Wrist fracture [Unknown]
  - Radius fracture [Unknown]
  - Clavicle fracture [Unknown]
  - Arthritis [Unknown]
  - Osteoporosis [Unknown]
  - Osteoarthritis [Unknown]
  - Intervertebral disc degeneration [Unknown]
